FAERS Safety Report 8378379-8 (Version None)
Quarter: 2012Q2

REPORT INFORMATION
  Report Type: 
  Country: None (occurrence: None)
  Receive Date: 20120522
  Receipt Date: 20120515
  Transmission Date: 20120825
  Serious: Yes (Disabling, Other)
  Sender: FDA-Public Use
  Company Number: BR-ABBOTT-12P-020-0936051-00

PATIENT
  Sex: Male
  Weight: 89 kg

DRUGS (11)
  1. HUMIRA [Suspect]
     Route: 058
  2. ENALAPRIL MALEATE [Concomitant]
     Indication: HYPERTENSION
     Dosage: IN THE MORNING / AT NIGHT
     Route: 048
  3. HUMIRA [Suspect]
     Route: 058
     Dates: start: 20110301
  4. VERAPAMIL HYDROCHLORIDE [Concomitant]
     Indication: ARRHYTHMIA
     Dosage: IN THE MORNING
     Route: 048
  5. HUMIRA [Suspect]
     Indication: PSORIATIC ARTHROPATHY
     Route: 058
     Dates: start: 20080627, end: 20100506
  6. SINVASCOR [Concomitant]
     Indication: BLOOD CHOLESTEROL
     Dosage: AFTER DINNER
     Route: 048
  7. DIGOXIN [Concomitant]
     Indication: VASOCONSTRICTION
     Dosage: IN THE MORNING
     Route: 048
  8. ZOLPIDEM [Concomitant]
     Indication: SLEEP DISORDER
     Dosage: 0.5 TABLET OR 1 TABLET AT NIGHT
     Route: 048
  9. METFFORMIN HYDROCHLORIDE [Concomitant]
     Indication: DIABETES MELLITUS
     Route: 048
  10. WARFARIN SODIUM [Concomitant]
     Indication: ANTICOAGULANT THERAPY
     Dosage: IN THE MORNING
     Route: 048
  11. LEVOTHYROXINE SODIUM [Concomitant]
     Indication: THYROID DISORDER
     Dosage: FASTING
     Route: 048

REACTIONS (21)
  - FEELING OF DESPAIR [None]
  - SKIN INDURATION [None]
  - ROAD TRAFFIC ACCIDENT [None]
  - ANXIETY [None]
  - INCOHERENT [None]
  - THORACIC VERTEBRAL FRACTURE [None]
  - BEDRIDDEN [None]
  - MOVEMENT DISORDER [None]
  - MENTAL DISORDER [None]
  - PSORIASIS [None]
  - GAIT DISTURBANCE [None]
  - SKIN EXFOLIATION [None]
  - DEPRESSION [None]
  - NERVOUSNESS [None]
  - ARTHRALGIA [None]
  - PARALYSIS [None]
  - CONFUSIONAL STATE [None]
  - HAEMORRHAGE [None]
  - STRESS [None]
  - INJECTION SITE PRURITUS [None]
  - INJECTION SITE PAIN [None]
